FAERS Safety Report 8048584-9 (Version None)
Quarter: 2012Q1

REPORT INFORMATION
  Report Type: 
  Country: None (occurrence: None)
  Receive Date: 20120117
  Receipt Date: 20120109
  Transmission Date: 20120608
  Serious: Yes (Hospitalization, Disabling, Other)
  Sender: FDA-Public Use
  Company Number: NO-JNJFOC-20110810270

PATIENT
  Sex: Male
  Weight: 72 kg

DRUGS (7)
  1. RAMIPRIL [Concomitant]
     Indication: HYPERTENSION
     Route: 048
  2. IMURAN [Suspect]
     Indication: CROHN'S DISEASE
     Dates: start: 20090905
  3. PRAVACHOL [Concomitant]
     Route: 048
  4. REMICADE [Suspect]
     Dosage: 300-500 MG
     Route: 042
     Dates: start: 20101012
  5. WARFARIN SODIUM [Concomitant]
     Indication: ATRIAL FIBRILLATION
     Route: 048
  6. METOPROLOL TARTRATE [Concomitant]
     Indication: ATRIAL FIBRILLATION
     Dosage: DURATION OF DRUG ADMINISTRATION WAS 2 YEARS
     Route: 048
  7. REMICADE [Suspect]
     Indication: CROHN'S DISEASE
     Route: 042
     Dates: start: 20090421

REACTIONS (2)
  - INTERSTITIAL LUNG DISEASE [None]
  - ATRIAL FIBRILLATION [None]
